FAERS Safety Report 7777595-3 (Version None)
Quarter: 2011Q3

REPORT INFORMATION
  Report Type: 
  Country: None (occurrence: None)
  Receive Date: 20110922
  Receipt Date: 20110902
  Transmission Date: 20111222
  Serious: Yes (Other)
  Sender: FDA-Public Use
  Company Number: JPI-P-016922

PATIENT
  Age: 32 Year
  Sex: Female
  Weight: 68.0396 kg

DRUGS (6)
  1. AMPHETAMINE, DEXTROAMPHETAMINE MIXED SALTS [Concomitant]
  2. METFORMIN HCL [Concomitant]
  3. DEXLANSOPRAZOLE [Concomitant]
  4. XYREM [Suspect]
     Indication: CATAPLEXY
     Dosage: (UNKNOWN, 2 IN 1 D), ORAL, (UNKNOWN, TAKEN OFF AND ON), ORAL, 9 GM (4.5 GM, 2 IN 1 D), ORAL
     Route: 048
     Dates: start: 20110501
  5. XYREM [Suspect]
     Indication: CATAPLEXY
     Dosage: (UNKNOWN, 2 IN 1 D), ORAL, (UNKNOWN, TAKEN OFF AND ON), ORAL, 9 GM (4.5 GM, 2 IN 1 D), ORAL
     Route: 048
     Dates: start: 20110201, end: 20110101
  6. XYREM [Suspect]
     Indication: CATAPLEXY
     Dosage: (UNKNOWN, 2 IN 1 D), ORAL, (UNKNOWN, TAKEN OFF AND ON), ORAL, 9 GM (4.5 GM, 2 IN 1 D), ORAL
     Route: 048
     Dates: start: 20110101, end: 20110501

REACTIONS (1)
  - THYROID CANCER [None]
